FAERS Safety Report 21860577 (Version 1)
Quarter: 2023Q1

REPORT INFORMATION
  Report Type: Spontaneous
  Country: US (occurrence: None)
  Receive Date: 20230107
  Receipt Date: 20230107
  Transmission Date: 20230417
  Serious: Yes (Other)
  Sender: FDA-Public Use
  Company Number: None

PATIENT
  Age: 31 Year
  Sex: Female

DRUGS (5)
  1. CARBAMIDE PEROXIDE [Suspect]
     Active Substance: CARBAMIDE PEROXIDE
     Indication: Tooth discolouration
     Dosage: OTHER QUANTITY : 1 ML;?FREQUENCY : AT BEDTIME;?OTHER ROUTE : APPLIED TO TEETH, LEFT OVERNIGHT;?
     Route: 050
     Dates: start: 20221221, end: 20221222
  2. OMEPRAZOLE [Concomitant]
     Active Substance: OMEPRAZOLE
  3. VITAMINS [Concomitant]
     Active Substance: VITAMINS
  4. VITAMIN D NOS [Concomitant]
     Active Substance: VITAMIN D NOS
  5. VITAMIN B [Concomitant]
     Active Substance: VITAMIN B

REACTIONS (1)
  - Maternal exposure during breast feeding [None]

NARRATIVE: CASE EVENT DATE: 20221221
